FAERS Safety Report 9661747 (Version 1)
Quarter: 2013Q4

REPORT INFORMATION
  Report Type: Spontaneous
  Country: BR (occurrence: None)
  Receive Date: 20131030
  Receipt Date: 20131030
  Transmission Date: 20140711
  Serious: Yes (Other)
  Sender: FDA-Public Use
  Company Number: VAL_02787_2013

PATIENT
  Age: 77 Year
  Sex: Female
  Weight: 62 kg

DRUGS (1)
  1. PARLODEL [Suspect]
     Indication: PRODUCT USED FOR UNKNOWN INDICATION
     Dosage: 0.5 DF, 2.5 MG, DAILY, ORAL
     Route: 048
     Dates: start: 2008

REACTIONS (6)
  - Parkinson^s disease [None]
  - Hypertension [None]
  - Back pain [None]
  - Muscular weakness [None]
  - Gait disturbance [None]
  - Tremor [None]
